FAERS Safety Report 5873844-7 (Version None)
Quarter: 2008Q3

REPORT INFORMATION
  Report Type: 
  Country: None (occurrence: None)
  Receive Date: 20080829
  Receipt Date: 20080827
  Transmission Date: 20090109
  Serious: Yes (Death)
  Sender: FDA-Public Use
  Company Number: 2007SP021924

PATIENT
  Age: 28 Year
  Sex: Male
  Weight: 53 kg

DRUGS (4)
  1. TEMODAL [Suspect]
     Indication: GLIOBLASTOMA MULTIFORME
     Dosage: 75 MG/M2; QD; PO
     Route: 048
     Dates: start: 20061106, end: 20061124
  2. FAMOTIDINE [Concomitant]
  3. EXCEGRAN [Concomitant]
  4. MAGNESIUM OXIDE [Concomitant]

REACTIONS (2)
  - HYDROCEPHALUS [None]
  - INTRACRANIAL TUMOUR HAEMORRHAGE [None]
